FAERS Safety Report 22537553 (Version 1)
Quarter: 2023Q2

REPORT INFORMATION
  Report Type: Spontaneous
  Country: MX (occurrence: MX)
  Receive Date: 20230608
  Receipt Date: 20230608
  Transmission Date: 20230722
  Serious: Yes (Death, Hospitalization)
  Sender: FDA-Public Use
  Company Number: MX-002147023-NVSC2023MX081345

PATIENT
  Sex: Female

DRUGS (1)
  1. GLIVEC [Suspect]
     Active Substance: IMATINIB MESYLATE
     Indication: Chronic myeloid leukaemia
     Dosage: 300 MG (3 X 100 MG)
     Route: 065

REACTIONS (5)
  - Neck injury [Fatal]
  - Asthenia [Fatal]
  - Dehydration [Fatal]
  - Malaise [Fatal]
  - Acne cystic [Not Recovered/Not Resolved]
